FAERS Safety Report 8316238-7 (Version None)
Quarter: 2012Q2

REPORT INFORMATION
  Report Type: 
  Country: None (occurrence: None)
  Receive Date: 20120427
  Receipt Date: 20120423
  Transmission Date: 20120825
  Serious: No
  Sender: FDA-Public Use
  Company Number: US-PFIZER INC-2012100337

PATIENT
  Sex: Female
  Weight: 90.249 kg

DRUGS (10)
  1. SPIRONOLACTONE [Concomitant]
     Dosage: UNK
  2. PLAVIX [Concomitant]
     Dosage: UNK
  3. POTASSIUM [Concomitant]
     Dosage: UNK
  4. COMBIVENT [Concomitant]
     Dosage: UNK
     Route: 055
  5. CELEBREX [Suspect]
     Indication: ARTHRITIS
     Dosage: 200 MG, 1X/DAY
     Route: 048
  6. CELEBREX [Suspect]
     Indication: PAIN
     Dosage: UNK
     Route: 048
  7. ADVAIR DISKUS 100/50 [Concomitant]
     Dosage: UNK
  8. ATENOLOL [Concomitant]
     Dosage: UNK
  9. POLYETHYLENE GLYCOL [Concomitant]
     Dosage: UNK
  10. LASIX [Concomitant]
     Dosage: UNK

REACTIONS (2)
  - POOR PERIPHERAL CIRCULATION [None]
  - INFECTION [None]
